FAERS Safety Report 6413424 (Version 17)
Quarter: 2014Q2

REPORT INFORMATION
  Report Type: Spontaneous
  Country: US (occurrence: US)
  Receive Date: 20070914
  Receipt Date: 20140530
  Transmission Date: 20141212
  Serious: Yes (Death, Hospitalization, Other)
  Sender: FDA-Public Use
  Company Number: PHEH2007US12158

PATIENT
  Age: 72 Year
  Sex: Male
  Weight: 64.17 kg

DRUGS (24)
  1. ZOMETA [Suspect]
     Dosage: UNK
     Route: 041
     Dates: start: 20031126, end: 20070820
  2. PREDNISONE [Concomitant]
  3. NILANDRON [Concomitant]
  4. LOPURIN [Concomitant]
  5. Z-PAK [Concomitant]
  6. COUMADIN ^BOOTS^ [Concomitant]
  7. VICODIN [Concomitant]
  8. LASIX [Concomitant]
  9. LOVENOX [Concomitant]
  10. ARANESP [Concomitant]
  11. VENOFER [Concomitant]
  12. CASODEX [Concomitant]
  13. OXYCONTIN [Concomitant]
  14. OXYCODONE [Concomitant]
  15. NEURONTIN [Concomitant]
  16. LEVAQUIN [Concomitant]
  17. FENTANYL [Concomitant]
  18. DAPTOMYCIN [Concomitant]
  19. VANCOMYCIN [Concomitant]
  20. BENADRYL ^ACHE^ [Concomitant]
  21. SOLU-MEDROL [Concomitant]
  22. CIPRO ^MILES^ [Concomitant]
  23. BACLOFEN [Concomitant]
  24. ASA [Concomitant]

REACTIONS (131)
  - Death [Fatal]
  - Fall [Unknown]
  - Testis cancer [Unknown]
  - Ischaemia [Unknown]
  - Cerebral infarction [Unknown]
  - Osteonecrosis of jaw [Unknown]
  - Pain [Unknown]
  - Infection [Unknown]
  - Deformity [Unknown]
  - Tooth abscess [Unknown]
  - Tooth loss [Unknown]
  - Fatigue [Unknown]
  - Decubitus ulcer [Unknown]
  - Cachexia [Unknown]
  - Cardiomegaly [Unknown]
  - Neurogenic bladder [Unknown]
  - Osteoarthritis [Unknown]
  - Walking disability [Unknown]
  - Mass [Unknown]
  - Anaemia [Unknown]
  - Tooth infection [Unknown]
  - Memory impairment [Unknown]
  - Gastrointestinal motility disorder [Unknown]
  - Cerebrovascular accident [Unknown]
  - Deep vein thrombosis [Unknown]
  - Pain in extremity [Unknown]
  - Muscular weakness [Unknown]
  - Haematuria [Unknown]
  - Immobile [Unknown]
  - Pleural effusion [Recovered/Resolved]
  - Lung infiltration [Not Recovered/Not Resolved]
  - Staphylococcal osteomyelitis [Unknown]
  - Pneumonia [Unknown]
  - Leukocytosis [Unknown]
  - Leukocyturia [Unknown]
  - Escherichia sepsis [Unknown]
  - Urinary tract infection [Unknown]
  - Hypokalaemia [Unknown]
  - Failure to thrive [Unknown]
  - Malnutrition [Unknown]
  - Atrial fibrillation [Unknown]
  - Osteoporosis [Unknown]
  - Bursitis [Unknown]
  - Thrombophlebitis [Unknown]
  - Diplegia [Unknown]
  - Fibromyalgia [Unknown]
  - Constipation [Unknown]
  - Nausea [Unknown]
  - Onychomycosis [Unknown]
  - Radiculopathy [Unknown]
  - Gastrointestinal haemorrhage [Unknown]
  - Intervertebral disc protrusion [Unknown]
  - Vomiting [Unknown]
  - Vitamin D decreased [Unknown]
  - Spinal osteoarthritis [Unknown]
  - Osteoarthropathy [Unknown]
  - Scoliosis [Unknown]
  - Ascites [Unknown]
  - Generalised oedema [Unknown]
  - Bone marrow reticulin fibrosis [Unknown]
  - Metastases to spine [Unknown]
  - Metastases to liver [Unknown]
  - Abdominal pain [Unknown]
  - Type 2 diabetes mellitus [Unknown]
  - Skin ulcer [Recovering/Resolving]
  - Muscle spasms [Unknown]
  - Sciatica [Unknown]
  - Joint contracture [Unknown]
  - Mastoiditis [Unknown]
  - Kyphosis [Unknown]
  - Cervical cord compression [Unknown]
  - Cervical spinal stenosis [Unknown]
  - Cholecystitis [Unknown]
  - Adrenal gland injury [Unknown]
  - Pulmonary mass [Unknown]
  - Urinary retention [Unknown]
  - Renal failure [Unknown]
  - Mitral valve incompetence [Unknown]
  - Tricuspid valve incompetence [Unknown]
  - Gait disturbance [Unknown]
  - Cellulitis [Unknown]
  - Urinary incontinence [Unknown]
  - Paraplegia [Unknown]
  - Exostosis [Unknown]
  - Bacteraemia [Unknown]
  - Herpes zoster [Unknown]
  - Post herpetic neuralgia [Unknown]
  - Wound infection [Unknown]
  - Intervertebral disc space narrowing [Unknown]
  - Pyrexia [Unknown]
  - Chest pain [Unknown]
  - Asthenia [Not Recovered/Not Resolved]
  - Spinal deformity [Unknown]
  - Metastases to lung [Unknown]
  - Metastases to bone [Unknown]
  - Spinal compression fracture [Unknown]
  - Gallbladder disorder [Unknown]
  - Mental retardation [Unknown]
  - Electrolyte imbalance [Unknown]
  - Hip fracture [Unknown]
  - Hepatomegaly [Unknown]
  - Weight decreased [Unknown]
  - Metastases to lymph nodes [Unknown]
  - Mental status changes [Unknown]
  - Dyspnoea [Unknown]
  - Dilatation ventricular [Unknown]
  - Vision blurred [Unknown]
  - Rhonchi [Unknown]
  - Toothache [Unknown]
  - Discomfort [Unknown]
  - Wound [Unknown]
  - Back pain [Unknown]
  - Decreased appetite [Unknown]
  - Myositis [Unknown]
  - Head injury [Unknown]
  - Neuropathy peripheral [Unknown]
  - Gastrooesophageal reflux disease [Unknown]
  - Bladder neoplasm [Unknown]
  - Prostate infection [Unknown]
  - Balance disorder [Unknown]
  - Faecal incontinence [Unknown]
  - Thoracic vertebral fracture [Unknown]
  - Acetabulum fracture [Unknown]
  - Abdominal distension [Unknown]
  - Lethargy [Unknown]
  - Arthralgia [Unknown]
  - Bone pain [Unknown]
  - Cough [Unknown]
  - Abdominal pain lower [Unknown]
  - Diarrhoea [Unknown]
  - Paraesthesia [Unknown]
